FAERS Safety Report 22539108 (Version 2)
Quarter: 2023Q2

REPORT INFORMATION
  Report Type: Spontaneous
  Country: JP (occurrence: JP)
  Receive Date: 20230609
  Receipt Date: 20230614
  Transmission Date: 20230722
  Serious: Yes (Other)
  Sender: FDA-Public Use
  Company Number: JP-002147023-NVSC2023JP127539

PATIENT
  Age: 64 Year
  Sex: Male

DRUGS (7)
  1. CARBOPLATIN [Suspect]
     Active Substance: CARBOPLATIN
     Indication: Pleural mesothelioma malignant
     Dosage: FIRST LINE THERAPY, SIX COURSES
     Route: 065
  2. CARBOPLATIN [Suspect]
     Active Substance: CARBOPLATIN
     Dosage: SECOND LINE THERAPY, 8 COURSES
     Route: 065
  3. CARBOPLATIN [Suspect]
     Active Substance: CARBOPLATIN
     Dosage: THIRD LINE THERAPY AT 15 MONTHS
     Route: 065
  4. GEMCITABINE [Suspect]
     Active Substance: GEMCITABINE
     Indication: Pleural mesothelioma malignant
     Dosage: THIRD LINE THERAPY, AT 15 MONTHS
     Route: 065
  5. PEMETREXED [Suspect]
     Active Substance: PEMETREXED
     Indication: Pleural mesothelioma malignant
     Dosage: FIRST LINE THERAPY, SIX COURSES
     Route: 065
  6. PEMETREXED [Suspect]
     Active Substance: PEMETREXED
     Dosage: SECOND LINE THERAPY, 8 COURSES
     Route: 065
  7. PEMETREXED [Suspect]
     Active Substance: PEMETREXED
     Dosage: THIRD LINE THERAPY AT 15 MONTHS
     Route: 065

REACTIONS (3)
  - Pleural mesothelioma malignant [Recovering/Resolving]
  - Malignant neoplasm progression [Recovering/Resolving]
  - Product use in unapproved indication [Unknown]
